FAERS Safety Report 4791758-0 (Version None)
Quarter: 2005Q3

REPORT INFORMATION
  Report Type: 
  Country: None (occurrence: None)
  Receive Date: 20050920
  Receipt Date: 20050817
  Transmission Date: 20060218
  Serious: No
  Sender: FDA-Public Use
  Company Number: 200511674BBE

PATIENT
  Age: 51 Year
  Sex: Male
  Weight: 64.8644 kg

DRUGS (1)
  1. PROLASTIN [Suspect]
     Indication: ALPHA-1 ANTI-TRYPSIN DEFICIENCY
     Dosage: 4000 MG, TOTAL DIALY, INTRAVENOUS
     Route: 042
     Dates: start: 20050811

REACTIONS (2)
  - HEADACHE [None]
  - KIDNEY INFECTION [None]
